FAERS Safety Report 5044287-3 (Version None)
Quarter: 2006Q3

REPORT INFORMATION
  Report Type: 
  Country: None (occurrence: None)
  Receive Date: 20060706
  Receipt Date: 20060628
  Transmission Date: 20061208
  Serious: Yes (Life-Threatening, Other)
  Sender: FDA-Public Use
  Company Number: PHBS2006JP09849

PATIENT

DRUGS (1)
  1. VOLTAREN [Suspect]
     Indication: BACK PAIN
     Route: 054

REACTIONS (4)
  - CARDIAC ARREST [None]
  - ERYTHEMA [None]
  - EYELID OEDEMA [None]
  - RESPIRATORY FAILURE [None]
